FAERS Safety Report 7098508-6 (Version None)
Quarter: 2010Q4

REPORT INFORMATION
  Report Type: 
  Country: None (occurrence: None)
  Receive Date: 20101112
  Receipt Date: 20101104
  Transmission Date: 20110411
  Serious: Yes (Death, Hospitalization, Other)
  Sender: FDA-Public Use
  Company Number: JP-BAYER-200915058BYL

PATIENT
  Age: 66 Year
  Sex: Male
  Weight: 37 kg

DRUGS (13)
  1. NEXAVAR [Suspect]
     Indication: RENAL CELL CARCINOMA
     Dosage: UNIT DOSE: 200 MG
     Route: 048
     Dates: start: 20090824, end: 20091014
  2. NEXAVAR [Suspect]
     Dosage: UNIT DOSE: 200 MG
     Route: 048
     Dates: start: 20091015, end: 20091111
  3. NEXAVAR [Suspect]
     Dosage: UNIT DOSE: 200 MG
     Route: 048
     Dates: start: 20091112, end: 20091201
  4. NEXAVAR [Suspect]
     Route: 048
     Dates: end: 20100124
  5. GASTER D [Concomitant]
     Indication: PROPHYLAXIS
     Route: 048
     Dates: start: 20090820, end: 20100422
  6. OXYCONTIN [Concomitant]
     Route: 048
     Dates: start: 20091128, end: 20091128
  7. OXYCONTIN [Concomitant]
     Route: 048
     Dates: start: 20091130, end: 20091203
  8. OXYCONTIN [Concomitant]
     Route: 048
     Dates: start: 20091204, end: 20100422
  9. OXYCONTIN [Concomitant]
     Route: 048
     Dates: start: 20091129, end: 20091129
  10. JU-KAMA [Concomitant]
     Indication: PROPHYLAXIS
     Route: 048
     Dates: start: 20091129, end: 20100422
  11. GABAPEN [Concomitant]
     Route: 048
     Dates: start: 20091210, end: 20100422
  12. GASMOTIN [Concomitant]
     Indication: PROPHYLAXIS
     Route: 048
     Dates: start: 20091210, end: 20100422
  13. NOVAMIN [Concomitant]
     Indication: PROPHYLAXIS
     Route: 048
     Dates: start: 20091212, end: 20100422

REACTIONS (8)
  - ALOPECIA [None]
  - ANAEMIA [None]
  - DIARRHOEA [None]
  - MALAISE [None]
  - PALMAR-PLANTAR ERYTHRODYSAESTHESIA SYNDROME [None]
  - PLATELET COUNT DECREASED [None]
  - RENAL CELL CARCINOMA [None]
  - STOMATITIS [None]
